FAERS Safety Report 17438066 (Version 2)
Quarter: 2020Q1

REPORT INFORMATION
  Report Type: Report from Study
  Country: None (occurrence: US)
  Receive Date: 20200220
  Receipt Date: 20200309
  Transmission Date: 20200409
  Serious: Yes (Other)
  Sender: FDA-Public Use
  Company Number: US-ABBVIE-20K-163-3282122-00

PATIENT
  Sex: Female

DRUGS (1)
  1. HUMIRA [Suspect]
     Active Substance: ADALIMUMAB
     Indication: PSORIATIC ARTHROPATHY
     Route: 058

REACTIONS (8)
  - Lower limb fracture [Unknown]
  - Injection site pain [Unknown]
  - Angiopathy [Unknown]
  - Brain neoplasm [Unknown]
  - Hand fracture [Unknown]
  - Influenza [Unknown]
  - Neoplasm skin [Unknown]
  - Skin cancer [Unknown]

NARRATIVE: CASE EVENT DATE: 2020
